FAERS Safety Report 6968792-5 (Version None)
Quarter: 2010Q3

REPORT INFORMATION
  Report Type: 
  Country: None (occurrence: None)
  Receive Date: 20100907
  Receipt Date: 20100826
  Transmission Date: 20110219
  Serious: Yes (Hospitalization)
  Sender: FDA-Public Use
  Company Number: US-JNJCH-2010020044

PATIENT
  Age: 46 Month
  Sex: Female

DRUGS (5)
  1. DIPHENHYDRAMINE HCL [Suspect]
     Indication: VENOMOUS STING
     Dosage: TEXT:UNKNOWN
     Route: 048
  2. HYDROCORTISONE [Suspect]
     Indication: VENOMOUS STING
     Dosage: TEXT:UNKNOWN
     Route: 061
  3. CORTICOSTEROIDS [Suspect]
     Indication: VENOMOUS STING
     Dosage: TEXT:UNKNOWN
     Route: 042
  4. PREDNISONE [Suspect]
     Indication: VENOMOUS STING
     Dosage: TEXT:UNKNOWN
     Route: 048
  5. CEPHALEXIN [Suspect]
     Indication: VENOMOUS STING
     Dosage: TEXT:UNKNOWN
     Route: 065

REACTIONS (3)
  - DACRYOADENITIS ACQUIRED [None]
  - DRUG INEFFECTIVE FOR UNAPPROVED INDICATION [None]
  - OFF LABEL USE [None]
